FAERS Safety Report 5816945-1 (Version None)
Quarter: 2008Q3

REPORT INFORMATION
  Report Type: 
  Country: None (occurrence: None)
  Receive Date: 20080722
  Receipt Date: 20080714
  Transmission Date: 20090109
  Serious: Yes (Other)
  Sender: FDA-Public Use
  Company Number: PHEH2008US03403

PATIENT
  Sex: Female

DRUGS (5)
  1. TEKTURNA [Suspect]
     Indication: HYPERTENSION
     Dosage: 150 MG, QD
     Route: 048
     Dates: start: 20080212, end: 20080325
  2. LIPITOR [Concomitant]
     Dosage: 5 MG, UNK
     Dates: start: 19990301
  3. METOPROLOL TARTRATE [Concomitant]
     Dosage: 25 MG, UNK
     Dates: start: 19980101
  4. ASPIRIN [Concomitant]
     Dosage: 325 UNK, UNK
     Dates: start: 20030401
  5. INDOCIN [Concomitant]
     Dosage: UNK
     Dates: start: 19920101

REACTIONS (1)
  - HALLUCINATION [None]
